FAERS Safety Report 25147811 (Version 1)
Quarter: 2025Q2

REPORT INFORMATION
  Report Type: Spontaneous
  Country: US (occurrence: US)
  Receive Date: 20250402
  Receipt Date: 20250402
  Transmission Date: 20250717
  Serious: Yes (Hospitalization)
  Sender: NOVO NORDISK
  Company Number: US-NOVOPROD-1399395

PATIENT
  Age: 51 Year
  Sex: Female

DRUGS (1)
  1. OZEMPIC [Suspect]
     Active Substance: SEMAGLUTIDE
     Indication: Glucose tolerance impaired
     Route: 058
     Dates: start: 20240703, end: 20250326

REACTIONS (3)
  - Exostosis [Recovered/Resolved]
  - Wrong technique in product usage process [Unknown]
  - Product use in unapproved indication [Unknown]
